FAERS Safety Report 12696730 (Version 4)
Quarter: 2016Q4

REPORT INFORMATION
  Report Type: Spontaneous
  Country: JP (occurrence: JP)
  Receive Date: 20160830
  Receipt Date: 20161226
  Transmission Date: 20170207
  Serious: Yes (Life-Threatening)
  Sender: FDA-Public Use
  Company Number: JP-ROCHE-1822307

PATIENT
  Age: 44 Year
  Sex: Male
  Weight: 60 kg

DRUGS (18)
  1. ACTEMRA [Suspect]
     Active Substance: TOCILIZUMAB
     Indication: NEUROMYELITIS OPTICA SPECTRUM DISORDER
     Route: 041
     Dates: start: 20160202, end: 20160202
  2. ACTEMRA [Suspect]
     Active Substance: TOCILIZUMAB
     Route: 041
     Dates: start: 20160405, end: 20160405
  3. ACTEMRA [Suspect]
     Active Substance: TOCILIZUMAB
     Route: 041
     Dates: start: 20160531, end: 20160531
  4. PREDONINE [Suspect]
     Active Substance: PREDNISOLONE\PREDNISOLONE ACETATE\PREDNISOLONE SODIUM SUCCINATE
     Route: 042
     Dates: start: 20160124, end: 2016
  5. ACTEMRA [Suspect]
     Active Substance: TOCILIZUMAB
     Route: 041
     Dates: start: 20160426, end: 20160426
  6. ACTEMRA [Suspect]
     Active Substance: TOCILIZUMAB
     Route: 041
     Dates: start: 20160524, end: 20160524
  7. PREDONINE [Suspect]
     Active Substance: PREDNISOLONE\PREDNISOLONE ACETATE\PREDNISOLONE SODIUM SUCCINATE
     Route: 042
     Dates: start: 20160120, end: 201601
  8. ACTEMRA [Suspect]
     Active Substance: TOCILIZUMAB
     Route: 041
     Dates: start: 20160607, end: 20160607
  9. PREDONINE [Suspect]
     Active Substance: PREDNISOLONE\PREDNISOLONE ACETATE\PREDNISOLONE SODIUM SUCCINATE
     Route: 042
     Dates: start: 20160219, end: 2016
  10. ACTEMRA [Suspect]
     Active Substance: TOCILIZUMAB
     Indication: NEUROMYELITIS OPTICA SPECTRUM DISORDER
     Route: 041
     Dates: start: 20160308, end: 20160308
  11. ACTEMRA [Suspect]
     Active Substance: TOCILIZUMAB
     Route: 041
     Dates: start: 20160502, end: 20160502
  12. PREDONINE [Suspect]
     Active Substance: PREDNISOLONE\PREDNISOLONE ACETATE\PREDNISOLONE SODIUM SUCCINATE
     Indication: NEUROMYELITIS OPTICA SPECTRUM DISORDER
     Route: 042
     Dates: start: 20151227
  13. ACTEMRA [Suspect]
     Active Substance: TOCILIZUMAB
     Indication: NEUROMYELITIS OPTICA SPECTRUM DISORDER
     Route: 041
     Dates: start: 20160315, end: 20160315
  14. ACTEMRA [Suspect]
     Active Substance: TOCILIZUMAB
     Indication: NEUROMYELITIS OPTICA SPECTRUM DISORDER
     Route: 041
     Dates: start: 20160227, end: 20160227
  15. ACTEMRA [Suspect]
     Active Substance: TOCILIZUMAB
     Route: 041
     Dates: start: 20160510, end: 20160510
  16. ACTEMRA [Suspect]
     Active Substance: TOCILIZUMAB
     Indication: NEUROMYELITIS OPTICA SPECTRUM DISORDER
     Dosage: THE FRACTIONATION DOSE FREQUENCY IS UNCERTAIN. ?DOSE INTERVAL UNCERTAINTY
     Route: 041
     Dates: start: 20160118, end: 20160118
  17. ACTEMRA [Suspect]
     Active Substance: TOCILIZUMAB
     Route: 041
     Dates: start: 20160419, end: 20160419
  18. ACTEMRA [Suspect]
     Active Substance: TOCILIZUMAB
     Route: 041
     Dates: start: 20160517, end: 20160517

REACTIONS (4)
  - Pneumatosis intestinalis [Recovered/Resolved]
  - Off label use [Unknown]
  - Blood immunoglobulin E increased [Unknown]
  - Blood immunoglobulin G increased [Unknown]

NARRATIVE: CASE EVENT DATE: 20160301
